FAERS Safety Report 14479542 (Version 18)
Quarter: 2023Q4

REPORT INFORMATION
  Report Type: Spontaneous
  Country: IT (occurrence: IT)
  Receive Date: 20180202
  Receipt Date: 20231110
  Transmission Date: 20240110
  Serious: Yes (Life-Threatening, Hospitalization, Congenital Anomaly, Other)
  Sender: FDA-Public Use
  Company Number: None

PATIENT
  Age: 33 Week
  Sex: Female
  Weight: 1.97 kg

DRUGS (18)
  1. DICLOFENAC [Suspect]
     Active Substance: DICLOFENAC
     Indication: Sciatica
     Dosage: 75MG,QD,FROM 2ND-3RD MONTH OF PREGNANCY: 8 WEEKS
     Route: 064
  2. DICLOFENAC [Suspect]
     Active Substance: DICLOFENAC
     Dosage: 75 MILLIGRAM, QD
     Route: 064
  3. DICLOFENAC [Suspect]
     Active Substance: DICLOFENAC
     Dosage: 75 MG, QD, 2ND TO 3RD MONTH: 8 WEEKS
     Route: 064
  4. DICLOFENAC [Suspect]
     Active Substance: DICLOFENAC
     Dosage: UNK
     Route: 064
  5. NIMESULIDE [Suspect]
     Active Substance: NIMESULIDE
     Indication: Sciatica
     Dosage: 1 DF, QD, MATERNAL DOSE: 1UG/LITRE, 100MG FROM 4 M
     Route: 064
  6. NIMESULIDE [Suspect]
     Active Substance: NIMESULIDE
     Indication: Neuritis
     Dosage: 1DF, 100-200MG DAILY (FROM 3 MONTHS PRIOR TO
     Route: 064
  7. NIMESULIDE [Suspect]
     Active Substance: NIMESULIDE
     Dosage: 100 MG, QD/ 100MG FROM 4 M
     Route: 064
  8. NIMESULIDE [Suspect]
     Active Substance: NIMESULIDE
     Dosage: 1 DOSAGE FORM, QD
     Route: 064
  9. NIMESULIDE [Suspect]
     Active Substance: NIMESULIDE
     Dosage: UNK
     Route: 064
  10. ACETAMINOPHEN [Suspect]
     Active Substance: ACETAMINOPHEN
     Indication: Neuritis
     Dosage: 9 GRAM, QD (1 DF, QD, MATERNAL DOSE: 1 UG/LITRE)
     Route: 064
  11. ACETAMINOPHEN [Suspect]
     Active Substance: ACETAMINOPHEN
     Dosage: 1 DF, QD 8-9 G/DAY (2ND TO 3RD MONTH OF GESTATION)
     Route: 064
  12. ACETAMINOPHEN [Suspect]
     Active Substance: ACETAMINOPHEN
     Dosage: MATERNAL DOSE: 1 DF, QD (1 UG/LITRE)
     Route: 064
  13. ACETAMINOPHEN [Suspect]
     Active Substance: ACETAMINOPHEN
     Dosage: 1DF (100-200MG DAILY (FROM 3 MONTHS
     Route: 064
  14. ACETAMINOPHEN [Suspect]
     Active Substance: ACETAMINOPHEN
     Dosage: 1 DF, QD, 1-2 G/DAY (4TH MONTH TO DELIVERY)
     Route: 064
  15. ACETAMINOPHEN [Suspect]
     Active Substance: ACETAMINOPHEN
     Dosage: UNK
     Route: 064
  16. ACETAMINOPHEN [Suspect]
     Active Substance: ACETAMINOPHEN
     Dosage: UNK
     Route: 064
  17. ACETAMINOPHEN [Suspect]
     Active Substance: ACETAMINOPHEN
     Dosage: UNK
     Route: 064
  18. ACETAMINOPHEN [Suspect]
     Active Substance: ACETAMINOPHEN
     Dosage: 1 DF, 8-9 G/DAY (2ND-3RD MONTH OF GESTATION); 1-2
     Route: 064

REACTIONS (22)
  - Ductus arteriosus stenosis foetal [Recovered/Resolved]
  - Neonatal respiratory distress syndrome [Recovered/Resolved]
  - Bradycardia neonatal [Recovered/Resolved]
  - Neonatal respiratory acidosis [Unknown]
  - Cyanosis neonatal [Recovered/Resolved]
  - Renal failure neonatal [Recovered/Resolved]
  - Premature baby [Recovered/Resolved]
  - Polyuria [Unknown]
  - Blood creatinine increased [Recovered/Resolved]
  - Emphysema [Unknown]
  - Cyanosis [Unknown]
  - Low birth weight baby [Unknown]
  - Neonatal respiratory distress [Unknown]
  - Ductus arteriosus premature closure [Recovered/Resolved]
  - Foetal exposure during pregnancy [Recovered/Resolved]
  - Contraindication to medical treatment [Unknown]
  - Prescribed overdose [Unknown]
  - Renal failure [Recovered/Resolved]
  - Premature delivery [Recovered/Resolved]
  - Oligohydramnios [Unknown]
  - Bladder disorder [Unknown]
  - Specific gravity urine abnormal [Unknown]
